FAERS Safety Report 14925189 (Version 2)
Quarter: 2018Q2

REPORT INFORMATION
  Report Type: Spontaneous
  Country: GB (occurrence: GB)
  Receive Date: 20180522
  Receipt Date: 20180625
  Transmission Date: 20180711
  Serious: Yes (Other)
  Sender: FDA-Public Use
  Company Number: GB-PFIZER INC-2018198149

PATIENT
  Age: 17 Year
  Sex: Male

DRUGS (1)
  1. XANAX [Suspect]
     Active Substance: ALPRAZOLAM
     Dosage: UNK

REACTIONS (8)
  - Amnesia [Unknown]
  - Drug administered to patient of inappropriate age [Recovered/Resolved]
  - Loss of consciousness [Unknown]
  - Overdose [Unknown]
  - Substance use [Unknown]
  - Gait disturbance [Unknown]
  - Suspected counterfeit product [Unknown]
  - Confusional state [Unknown]
